FAERS Safety Report 7218271-5 (Version None)
Quarter: 2011Q1

REPORT INFORMATION
  Report Type: 
  Country: None (occurrence: None)
  Receive Date: 20110110
  Receipt Date: 20110107
  Transmission Date: 20110831
  Serious: Yes (Death, Other)
  Sender: FDA-Public Use
  Company Number: US-AMGEN-USASP2010010904

PATIENT

DRUGS (3)
  1. NPLATE [Suspect]
     Dates: start: 20100107
  2. NPLATE [Suspect]
     Indication: THROMBOCYTOPENIA
     Dosage: 595 MG, QWK
     Route: 058
     Dates: start: 20100121, end: 20100624
  3. IMMUNOGLOBULINS [Concomitant]
     Dosage: UNK
     Dates: start: 20100107

REACTIONS (3)
  - NON-HODGKIN'S LYMPHOMA [None]
  - EVANS SYNDROME [None]
  - WARM TYPE HAEMOLYTIC ANAEMIA [None]
